FAERS Safety Report 22652215 (Version 1)
Quarter: 2023Q2

REPORT INFORMATION
  Report Type: Spontaneous
  Country: US (occurrence: None)
  Receive Date: 20230628
  Receipt Date: 20230628
  Transmission Date: 20230721
  Serious: Yes (Hospitalization)
  Sender: FDA-Public Use
  Company Number: US-ROCHE-3378035

PATIENT
  Age: 64 Year
  Sex: Female
  Weight: 55.388 kg

DRUGS (7)
  1. RITUXIMAB [Suspect]
     Active Substance: RITUXIMAB
     Indication: Immune thrombocytopenia
     Dosage: 375MG/M2 ORDERED TO BE GIVEN WEEKLY FOR 1 MONTH
     Route: 041
     Dates: start: 20230613
  2. NPLATE [Suspect]
     Active Substance: ROMIPLOSTIM
     Indication: Immune thrombocytopenia
     Dosage: GIVEN EVERY THURSDAY
     Route: 065
  3. BENADRYL [Concomitant]
     Active Substance: DIPHENHYDRAMINE HYDROCHLORIDE
     Dosage: UNKNOWN
  4. CORTISONE [Concomitant]
     Active Substance: CORTISONE
     Dosage: UNKNOWN
  5. TYLENOL [Concomitant]
     Active Substance: ACETAMINOPHEN
     Dosage: UNKNOWN
  6. BUPROPION [Concomitant]
     Active Substance: BUPROPION
     Dosage: YES
     Route: 048
  7. CALCIUM CITRATE [Concomitant]
     Active Substance: CALCIUM CITRATE
     Dosage: YES
     Route: 048

REACTIONS (7)
  - Off label use [Unknown]
  - Platelet count increased [Not Recovered/Not Resolved]
  - Nausea [Unknown]
  - Vomiting [Unknown]
  - Pain [Unknown]
  - Gastrooesophageal reflux disease [Unknown]
  - Throat irritation [Unknown]

NARRATIVE: CASE EVENT DATE: 20230613
